FAERS Safety Report 15798107 (Version 1)
Quarter: 2019Q1

REPORT INFORMATION
  Report Type: Spontaneous
  Country: GB (occurrence: GB)
  Receive Date: 20190108
  Receipt Date: 20190108
  Transmission Date: 20190417
  Serious: Yes (Death, Other)
  Sender: FDA-Public Use
  Company Number: GB-PFIZER INC-2019005947

PATIENT
  Age: 67 Year
  Sex: Male

DRUGS (1)
  1. TAZOCIN [Suspect]
     Active Substance: PIPERACILLIN SODIUM\TAZOBACTAM SODIUM
     Indication: LOWER RESPIRATORY TRACT INFECTION
     Dosage: 20 ML, UNK (DILUTED TO 20ML WITH WATER IN THE VIAL)
     Route: 040
     Dates: start: 20180529, end: 20180529

REACTIONS (8)
  - Circulatory collapse [Unknown]
  - Eye movement disorder [Unknown]
  - Nausea [Unknown]
  - Respiratory arrest [Unknown]
  - Unresponsive to stimuli [Unknown]
  - Opisthotonus [Unknown]
  - Cardiac arrest [Fatal]
  - Bradycardia [Unknown]

NARRATIVE: CASE EVENT DATE: 20180529
